FAERS Safety Report 16106841 (Version 1)
Quarter: 2019Q1

REPORT INFORMATION
  Report Type: Spontaneous
  Country: US (occurrence: US)
  Receive Date: 20190322
  Receipt Date: 20190322
  Transmission Date: 20190418
  Serious: Yes (Other)
  Sender: FDA-Public Use
  Company Number: US-SEBELA IRELAND LIMITED-2019SEB00085

PATIENT
  Sex: Male

DRUGS (4)
  1. LOTRONEX [Suspect]
     Active Substance: ALOSETRON HYDROCHLORIDE
     Dosage: UNK
  2. LOTRONEX [Suspect]
     Active Substance: ALOSETRON HYDROCHLORIDE
     Indication: IRRITABLE BOWEL SYNDROME
     Dosage: 0.5 MG, 2X/DAY
  3. LOTRONEX [Suspect]
     Active Substance: ALOSETRON HYDROCHLORIDE
     Dosage: 0.25 MG, EVERY 2 DAYS
  4. UNSPECIFIED MEDICATION [Suspect]
     Active Substance: UNSPECIFIED INGREDIENT

REACTIONS (4)
  - Cerebrovascular accident [Unknown]
  - Constipation [Recovered/Resolved]
  - Off label use [Not Recovered/Not Resolved]
  - Drug interaction [Recovered/Resolved]
